FAERS Safety Report 11182739 (Version 3)
Quarter: 2016Q2

REPORT INFORMATION
  Report Type: Spontaneous
  Country: US (occurrence: US)
  Receive Date: 20150611
  Receipt Date: 20160512
  Transmission Date: 20160815
  Serious: No
  Sender: FDA-Public Use
  Company Number: US-PFIZER INC-2015195317

PATIENT
  Age: 75 Year
  Sex: Female
  Weight: 71 kg

DRUGS (24)
  1. DIFLUCAN [Concomitant]
     Active Substance: FLUCONAZOLE
     Dosage: 150 MG, UNK ( 1 TAB ONE TIME DOSE)
     Route: 048
     Dates: start: 20160129
  2. CEPHALEXIN. [Suspect]
     Active Substance: CEPHALEXIN
     Indication: CYSTITIS
     Dosage: 250 MG, 4X/DAY
     Dates: start: 2015
  3. CEPHALEXIN. [Suspect]
     Active Substance: CEPHALEXIN
     Indication: URINARY TRACT INFECTION
     Dosage: 250 MG, 3X/DAY
     Dates: start: 2015
  4. LORAZEPAM. [Concomitant]
     Active Substance: LORAZEPAM
     Dosage: 1 MG, AS NEEDED (THREE TIMES DAILY)
     Route: 048
     Dates: start: 20160314
  5. TYLENOL [Concomitant]
     Active Substance: ACETAMINOPHEN
     Indication: ARTHRITIS
     Dosage: 500 MG, 1X/DAY
     Dates: start: 2003
  6. ROBAXIN [Concomitant]
     Active Substance: METHOCARBAMOL
     Dosage: 500 MG, AS NEEDED (TWO TIMES DAILY)
     Route: 048
     Dates: start: 20141027
  7. TRIAZOLAM. [Concomitant]
     Active Substance: TRIAZOLAM
     Dosage: 0.125 MG, AS NEEDED (1-2 TABLET (ORAL) QHS)
     Route: 048
     Dates: start: 20140906
  8. VITAMIN D3 [Concomitant]
     Active Substance: CHOLECALCIFEROL
     Dosage: 1000 MG, 1X/DAY
     Dates: start: 2003
  9. VITAMIN D [Concomitant]
     Active Substance: CHOLECALCIFEROL
     Dosage: 2000 DF, DAILY
     Dates: start: 20130320
  10. ESTRACE [Concomitant]
     Active Substance: ESTRADIOL
     Dosage: 3 G, DAILY (0.1 MG/GM 3 GRAMS DAILY FOR 1 WEEK)
     Dates: start: 20150914
  11. ELOCON [Concomitant]
     Active Substance: MOMETASONE FUROATE
     Dosage: 0.1 %, AS NEEDED (TWICE A DAY)
     Route: 061
     Dates: start: 20140625
  12. LORAZEPAM. [Concomitant]
     Active Substance: LORAZEPAM
     Indication: ANXIETY
     Dosage: 1 MG, 3X/DAY
     Dates: start: 1972
  13. TYLENOL [Concomitant]
     Active Substance: ACETAMINOPHEN
     Indication: PYREXIA
  14. CYANOCOBALAMIN. [Concomitant]
     Active Substance: CYANOCOBALAMIN
     Dosage: 1 ML, MONTHLY (1000 MCG/ML SOLUTION)
     Dates: start: 20160328
  15. HYOSCYAMINE SULFATE. [Concomitant]
     Active Substance: HYOSCYAMINE SULFATE
     Dosage: 0.125 MG, AS NEEDED (EVERY 6 HOURS)
     Route: 048
     Dates: start: 20150708
  16. LYRICA [Suspect]
     Active Substance: PREGABALIN
     Indication: NEUROPATHY PERIPHERAL
     Dosage: 50 MG, 3X/DAY
  17. ZANTAC 75 [Concomitant]
     Active Substance: RANITIDINE HYDROCHLORIDE
     Dosage: 75 MG, 2X/DAY
     Route: 048
     Dates: start: 20151112
  18. DIAZEPAM. [Concomitant]
     Active Substance: DIAZEPAM
     Dosage: 10 MG, AS NEEDED (1/2-1 TABLET QHS)
     Route: 048
     Dates: start: 20140425
  19. TRAMADOL HCL [Concomitant]
     Active Substance: TRAMADOL HYDROCHLORIDE
     Dosage: 50 MG, AS NEEDED (1-2 TABLET EVERY SIX HOURS)
     Route: 048
     Dates: start: 20150203
  20. LYRICA [Suspect]
     Active Substance: PREGABALIN
     Indication: FIBROMYALGIA
     Dosage: 50 MG, 2X/DAY
  21. LYRICA [Suspect]
     Active Substance: PREGABALIN
     Dosage: 50 MG, 3X/DAY
     Route: 048
     Dates: start: 20160328
  22. VITAMIN D [Concomitant]
     Active Substance: CHOLECALCIFEROL
     Dosage: 1000 UNIT 1-2 TABLET DAILY
     Route: 048
     Dates: start: 20160330
  23. ESTRACE [Concomitant]
     Active Substance: ESTRADIOL
     Dosage: 1 G, AS NEEDED (0.1 MG/GM, 1G ONE TO THREE TIMES A WEEK AS NEEDED FOR 30 DAYS)
  24. MAGNESIUM OXIDE. [Concomitant]
     Active Substance: MAGNESIUM OXIDE
     Dosage: 250 MG, 2X/DAY
     Route: 048
     Dates: start: 20140319

REACTIONS (9)
  - Drug hypersensitivity [Recovered/Resolved]
  - Pain [Not Recovered/Not Resolved]
  - Intentional product misuse [Unknown]
  - Cystitis [Unknown]
  - Gingival swelling [Recovered/Resolved]
  - Spondylitis [Not Recovered/Not Resolved]
  - Tongue ulceration [Recovered/Resolved]
  - Noninfective gingivitis [Recovered/Resolved]
  - Increased appetite [Unknown]

NARRATIVE: CASE EVENT DATE: 2005
